FAERS Safety Report 14164889 (Version 2)
Quarter: 2017Q4

REPORT INFORMATION
  Report Type: Report from Study
  Country: BR (occurrence: BR)
  Receive Date: 20171107
  Receipt Date: 20171121
  Transmission Date: 20180321
  Serious: Yes (Hospitalization, Other)
  Sender: FDA-Public Use
  Company Number: PHHY2017BR162321

PATIENT
  Sex: Male
  Weight: 70 kg

DRUGS (3)
  1. DIOVAN AMLO FIX [Suspect]
     Active Substance: AMLODIPINE\VALSARTAN
     Indication: HYPERTENSION
     Dosage: 1 DF (AMLODIPINE 10 MG, VALSARTAN 320 MG), QD (IN THE MORNING)
     Route: 048
  2. DIOVAN AMLO FIX [Suspect]
     Active Substance: AMLODIPINE\VALSARTAN
     Indication: CARDIAC DISORDER
     Dosage: 1 DF (AMLODIPINE 10 MG, VALSARTAN 320 MG), QD (IN THE MORNING) (2 MONTHS AGO)
     Route: 048
  3. VALSARTAN. [Suspect]
     Active Substance: VALSARTAN
     Indication: HYPERTENSION
     Dosage: 320 MG, QD
     Route: 048

REACTIONS (3)
  - Venous occlusion [Unknown]
  - Blood pressure increased [Recovered/Resolved]
  - Diabetes mellitus [Recovered/Resolved]
